FAERS Safety Report 9419973 (Version 1)
Quarter: 2013Q3

REPORT INFORMATION
  Report Type: Report from Study
  Country: IL (occurrence: IL)
  Receive Date: 20130725
  Receipt Date: 20130725
  Transmission Date: 20140515
  Serious: Yes (Hospitalization)
  Sender: FDA-Public Use
  Company Number: IL-BAYER-2012-076334

PATIENT
  Sex: Female
  Weight: 74.5 kg

DRUGS (13)
  1. REGORAFENIB [Suspect]
     Indication: COLORECTAL CANCER
     Dosage: 40 MG X 4
     Route: 048
     Dates: start: 20120716, end: 20120728
  2. REGORAFENIB [Suspect]
     Indication: COLORECTAL CANCER
     Dosage: 40 MG X 4
     Route: 048
     Dates: start: 20120716, end: 20120728
  3. REGORAFENIB [Suspect]
     Indication: COLORECTAL CANCER
     Dosage: 40 MG X 4
     Route: 048
     Dates: start: 20120716, end: 20120728
  4. ELTROXIN [Concomitant]
     Indication: HYPOTHYROIDISM
     Dosage: 900 / ILEGIBLE
     Route: 048
     Dates: start: 201003
  5. BONDORMIN [Concomitant]
     Indication: INSOMNIA
     Dosage: DAILY DOSE .25 MG
     Route: 048
     Dates: start: 200711
  6. LOSEC [Concomitant]
     Indication: HERNIA
     Dosage: DAILY DOSE 20 MG
     Route: 048
     Dates: start: 2007
  7. CIPRAMIL [Concomitant]
     Indication: DEPRESSION
     Dosage: DAILY DOSE 10 MG
     Route: 048
     Dates: start: 201206
  8. MCR [Concomitant]
     Indication: BACK PAIN
     Dosage: DAILY DOSE 60 MG
     Route: 048
     Dates: start: 20120616
  9. CHLORHEXIDINE [Concomitant]
     Indication: LARYNGEAL INFLAMMATION
     Dosage: 1CC
     Route: 048
     Dates: start: 20120530
  10. MICONAZOLE [Concomitant]
     Indication: LARYNGEAL INFLAMMATION
     Dosage: 1CC
     Route: 048
     Dates: start: 20120530
  11. LIDOCAINE [Concomitant]
     Indication: LARYNGEAL INFLAMMATION
     Dosage: 1CC
     Route: 048
     Dates: start: 20120530
  12. CLOBETASOL [Concomitant]
     Indication: LARYNGEAL INFLAMMATION
     Dosage: DAILY DOSE .05 %
     Route: 048
     Dates: start: 20120530
  13. MIR [Concomitant]
     Indication: BACK PAIN
     Dosage: DAILY DOSE 15 MG
     Route: 048
     Dates: start: 20120806

REACTIONS (1)
  - Drug reaction with eosinophilia and systemic symptoms [Recovered/Resolved]
